FAERS Safety Report 12835926 (Version 1)
Quarter: 2016Q4

REPORT INFORMATION
  Report Type: Spontaneous
  Country: US (occurrence: US)
  Receive Date: 20161011
  Receipt Date: 20161011
  Transmission Date: 20170207
  Serious: No
  Sender: FDA-Public Use
  Company Number: US-ENDO PHARMACEUTICALS INC.-2016-001840

PATIENT
  Sex: Female
  Weight: 59.02 kg

DRUGS (2)
  1. ALPRAZOLAM IR TABLETS 0.5MG [Suspect]
     Active Substance: ALPRAZOLAM
     Indication: DEPRESSED MOOD
     Route: 048
     Dates: start: 2001
  2. ALPRAZOLAM IR TABLETS 0.5MG [Suspect]
     Active Substance: ALPRAZOLAM
     Route: 048
     Dates: start: 201602

REACTIONS (3)
  - Off label use [Not Recovered/Not Resolved]
  - Intentional product misuse [Unknown]
  - Underdose [Unknown]
